FAERS Safety Report 8060275-7 (Version None)
Quarter: 2012Q1

REPORT INFORMATION
  Report Type: 
  Country: None (occurrence: None)
  Receive Date: 20120120
  Receipt Date: 20120119
  Transmission Date: 20120608
  Serious: Yes (Death, Hospitalization)
  Sender: FDA-Public Use
  Company Number: PHHY2011AU099801

PATIENT
  Sex: Male

DRUGS (4)
  1. ANTIHYPERTENSIVES [Suspect]
  2. CLOZARIL [Suspect]
     Dosage: 300 MG
     Dates: start: 20050808
  3. PERINDOPRIL [Suspect]
  4. VALPROIC ACID [Suspect]

REACTIONS (5)
  - DEATH [None]
  - DRUG INTERACTION [None]
  - FALL [None]
  - RENAL FAILURE [None]
  - CELLULITIS [None]
